FAERS Safety Report 18322084 (Version 1)
Quarter: 2020Q3

REPORT INFORMATION
  Report Type: Report from Study
  Country: US (occurrence: US)
  Receive Date: 20200928
  Receipt Date: 20200928
  Transmission Date: 20201103
  Serious: No
  Sender: FDA-Public Use
  Company Number: NVSC2020US259999

PATIENT
  Sex: Female

DRUGS (1)
  1. COSENTYX [Suspect]
     Active Substance: SECUKINUMAB
     Indication: PSORIASIS
     Dosage: 2 DF, QW (300MG) (AT WEEK 0, 1, 2 AND 3)
     Route: 058

REACTIONS (3)
  - Psoriasis [Unknown]
  - Incorrect dose administered [Unknown]
  - Pruritus [Unknown]
